FAERS Safety Report 25256393 (Version 1)
Quarter: 2025Q2

REPORT INFORMATION
  Report Type: Spontaneous
  Country: US (occurrence: US)
  Receive Date: 20250430
  Receipt Date: 20250430
  Transmission Date: 20250716
  Serious: Yes (Other)
  Sender: ETHYPHARM
  Company Number: US-MLMSERVICE-20250401-PI459405-00073-1

PATIENT
  Age: 37 Year
  Sex: Male

DRUGS (5)
  1. BUPRENORPHINE [Suspect]
     Active Substance: BUPRENORPHINE
     Route: 060
  2. ALPRAZOLAM [Concomitant]
     Active Substance: ALPRAZOLAM
     Indication: Anxiety
     Dosage: AS NEEDED
  3. AMPHETAMINE\DEXTROAMPHETAMINE [Concomitant]
     Active Substance: AMPHETAMINE\DEXTROAMPHETAMINE
  4. TRAZODONE [Concomitant]
     Active Substance: TRAZODONE HYDROCHLORIDE
     Dosage: NIGHTLY
  5. LORAZEPAM [Concomitant]
     Active Substance: LORAZEPAM
     Indication: Alcohol withdrawal syndrome
     Route: 048

REACTIONS (13)
  - Hallucination [Recovering/Resolving]
  - Withdrawal syndrome [Recovering/Resolving]
  - Restless legs syndrome [Recovering/Resolving]
  - Agitation [Recovering/Resolving]
  - Anxiety [Recovering/Resolving]
  - Diarrhoea [Recovering/Resolving]
  - Discomfort [Recovering/Resolving]
  - Yawning [Recovering/Resolving]
  - Fall [Unknown]
  - Confusional state [Recovering/Resolving]
  - Emotional distress [Recovering/Resolving]
  - Lacrimation increased [Recovering/Resolving]
  - Restlessness [Recovering/Resolving]
